FAERS Safety Report 7049567-8 (Version None)
Quarter: 2010Q4

REPORT INFORMATION
  Report Type: 
  Country: None (occurrence: None)
  Receive Date: 20101018
  Receipt Date: 20101013
  Transmission Date: 20110411
  Serious: Yes (Death)
  Sender: FDA-Public Use
  Company Number: US-GILEAD-2010-0032095

PATIENT
  Sex: Male

DRUGS (14)
  1. LETAIRIS [Suspect]
     Indication: PULMONARY ARTERIAL HYPERTENSION
     Route: 048
     Dates: start: 20080522, end: 20100922
  2. WARFARIN SODIUM [Concomitant]
  3. ASPIRIN [Concomitant]
  4. FUROSEMIDE [Concomitant]
  5. METOLAZONE [Concomitant]
  6. METOPROLOL [Concomitant]
  7. RANEXA [Concomitant]
  8. INSULIN [Concomitant]
  9. BUPROPION [Concomitant]
  10. XALATAN [Concomitant]
  11. ALPHAGAN P [Concomitant]
  12. COSOPT [Concomitant]
  13. MORPHINE [Concomitant]
  14. POTASSIUM [Concomitant]

REACTIONS (1)
  - DEATH [None]
